FAERS Safety Report 17350131 (Version 3)
Quarter: 2020Q1

REPORT INFORMATION
  Report Type: Spontaneous
  Country: ES (occurrence: ES)
  Receive Date: 20200130
  Receipt Date: 20200218
  Transmission Date: 20200409
  Serious: Yes (Death, Other)
  Sender: FDA-Public Use
  Company Number: ES-CELGENEUS-ESP-20200110298

PATIENT
  Age: 39 Year
  Sex: Male
  Weight: 74.1 kg

DRUGS (4)
  1. GEMCITABINE. [Concomitant]
     Active Substance: GEMCITABINE
     Indication: DUCTAL ADENOCARCINOMA OF PANCREAS
     Route: 065
     Dates: start: 20190423, end: 20190827
  2. DURVALUMAB. [Concomitant]
     Active Substance: DURVALUMAB
     Indication: DUCTAL ADENOCARCINOMA OF PANCREAS
     Dosage: 1500 MILLIGRAM
     Route: 042
     Dates: start: 20190423, end: 20190716
  3. OLECLUMAB. [Concomitant]
     Active Substance: OLECLUMAB
     Indication: DUCTAL ADENOCARCINOMA OF PANCREAS
     Dosage: 3000 MILLIGRAM
     Route: 042
     Dates: start: 20190423, end: 20190814
  4. ABRAXANE [Suspect]
     Active Substance: PACLITAXEL
     Indication: DUCTAL ADENOCARCINOMA OF PANCREAS
     Route: 065
     Dates: start: 20190423, end: 20190827

REACTIONS (1)
  - Dysarthria [Fatal]

NARRATIVE: CASE EVENT DATE: 20191220
